FAERS Safety Report 9133973 (Version 2)
Quarter: 2013Q2

REPORT INFORMATION
  Report Type: Spontaneous
  Country: US (occurrence: US)
  Receive Date: 20130304
  Receipt Date: 20130430
  Transmission Date: 20140414
  Serious: No
  Sender: FDA-Public Use
  Company Number: US-009507513-1302USA007712

PATIENT
  Age: 56 Year
  Sex: Male

DRUGS (5)
  1. VICTRELIS [Suspect]
     Indication: CHRONIC HEPATITIS C
     Dosage: 800 MG, TID
     Route: 048
     Dates: start: 20121227
  2. PEGASYS [Suspect]
  3. RIBASPHERE [Suspect]
  4. GABAPENTIN [Concomitant]
  5. IRON (UNSPECIFIED) (+) VITAMINS (UNSPECIFIED) [Concomitant]

REACTIONS (4)
  - Stomatitis [Not Recovered/Not Resolved]
  - Asthenia [Not Recovered/Not Resolved]
  - Fatigue [Not Recovered/Not Resolved]
  - Rash [Not Recovered/Not Resolved]
